FAERS Safety Report 20657331 (Version 1)
Quarter: 2022Q1

REPORT INFORMATION
  Report Type: Spontaneous
  Country: US (occurrence: US)
  Receive Date: 20220331
  Receipt Date: 20220331
  Transmission Date: 20220423
  Serious: Yes (Hospitalization)
  Sender: FDA-Public Use
  Company Number: US-CHIESI-2022CHF01439

PATIENT
  Age: 14 Year
  Sex: Male

DRUGS (6)
  1. BETHKIS [Suspect]
     Active Substance: TOBRAMYCIN
     Indication: Pneumonia
     Dosage: 300 MILLIGRAM, BID
     Route: 055
     Dates: start: 20191216
  2. BETHKIS [Suspect]
     Active Substance: TOBRAMYCIN
     Indication: Acute respiratory failure
  3. BETHKIS [Suspect]
     Active Substance: TOBRAMYCIN
     Indication: Hypoxia
  4. BETHKIS [Suspect]
     Active Substance: TOBRAMYCIN
     Indication: Lung disorder
  5. BETHKIS [Suspect]
     Active Substance: TOBRAMYCIN
     Indication: Respiration abnormal
  6. BETHKIS [Suspect]
     Active Substance: TOBRAMYCIN
     Indication: Off label use

REACTIONS (2)
  - Ill-defined disorder [Unknown]
  - Off label use [Not Recovered/Not Resolved]

NARRATIVE: CASE EVENT DATE: 20191216
